FAERS Safety Report 21228448 (Version 3)
Quarter: 2022Q4

REPORT INFORMATION
  Report Type: Spontaneous
  Country: US (occurrence: US)
  Receive Date: 20220818
  Receipt Date: 20221003
  Transmission Date: 20230112
  Serious: Yes (Other)
  Sender: FDA-Public Use
  Company Number: US-PFIZER INC-202201064305

PATIENT
  Age: 62 Year
  Sex: Female
  Weight: 62.585 kg

DRUGS (1)
  1. PAXLOVID [Suspect]
     Active Substance: NIRMATRELVIR\RITONAVIR
     Indication: COVID-19 treatment
     Dosage: 3 DF, 2X/DAY (300-100MG AND HAS BEEN TAKING TWICE A DAY)

REACTIONS (13)
  - Gastrointestinal haemorrhage [Unknown]
  - Decreased appetite [Unknown]
  - Nausea [Not Recovered/Not Resolved]
  - Abdominal pain [Unknown]
  - Back pain [Unknown]
  - Eating disorder [Unknown]
  - Weight decreased [Unknown]
  - Vomiting [Unknown]
  - Liver function test increased [Unknown]
  - Blood glucose increased [Unknown]
  - Illness [Unknown]
  - Abdominal pain upper [Unknown]
  - Dysgeusia [Unknown]
